FAERS Safety Report 24875071 (Version 1)
Quarter: 2025Q1

REPORT INFORMATION
  Report Type: Other
  Country: PT (occurrence: PT)
  Receive Date: 20250122
  Receipt Date: 20250122
  Transmission Date: 20250409
  Serious: Yes (Life-Threatening)
  Sender: B BRAUN
  Company Number: PT-B.Braun Medical Inc.-2169553

PATIENT
  Sex: Male

DRUGS (3)
  1. DEXTROSE\LIDOCAINE HYDROCHLORIDE [Suspect]
     Active Substance: DEXTROSE\LIDOCAINE HYDROCHLORIDE
     Indication: Ventricular tachycardia
  2. MIDAZOLAM [Suspect]
     Active Substance: MIDAZOLAM
  3. FENTANYL [Suspect]
     Active Substance: FENTANYL

REACTIONS (1)
  - Drug ineffective [Unknown]
